FAERS Safety Report 5134531-6 (Version None)
Quarter: 2006Q4

REPORT INFORMATION
  Report Type: 
  Country: None (occurrence: None)
  Receive Date: 20061019
  Receipt Date: 20061005
  Transmission Date: 20070319
  Serious: Yes (Disabling)
  Sender: FDA-Public Use
  Company Number: US200609000982

PATIENT
  Age: 83 Year
  Sex: Male

DRUGS (3)
  1. HUMULIN N [Suspect]
     Dosage: 15 U,3/D
     Dates: start: 19880601, end: 20030101
  2. NOVOLOG [Concomitant]
  3. LANTUS [Concomitant]

REACTIONS (2)
  - ARTHROPATHY [None]
  - CARDIAC DISORDER [None]
